FAERS Safety Report 7970114-8 (Version None)
Quarter: 2011Q4

REPORT INFORMATION
  Report Type: 
  Country: None (occurrence: None)
  Receive Date: 20111122
  Receipt Date: 20110628
  Transmission Date: 20120403
  Serious: No
  Sender: FDA-Public Use
  Company Number: PHHY2011US57707

PATIENT
  Age: 53 Year
  Sex: Female

DRUGS (2)
  1. DIAZEPAM [Concomitant]
  2. GILENYA [Suspect]
     Indication: MULTIPLE SCLEROSIS
     Dosage: 0.5 MG, EVERY DAY, ORAL
     Route: 048
     Dates: start: 20110518

REACTIONS (2)
  - BLADDER IRRITATION [None]
  - FATIGUE [None]
